FAERS Safety Report 4280364-2 (Version None)
Quarter: 2004Q1

REPORT INFORMATION
  Report Type: 
  Country: None (occurrence: None)
  Receive Date: 20040123
  Receipt Date: 20040115
  Transmission Date: 20041129
  Serious: Yes (Death)
  Sender: FDA-Public Use
  Company Number: JP-JNJFOC-20040103409

PATIENT
  Age: 93 Year
  Sex: Male

DRUGS (4)
  1. RISPERDAL [Suspect]
     Indication: SCHIZOPHRENIA
     Dosage: 4 MG, IN 1 DAY, ORAL
     Route: 048
     Dates: start: 20040108, end: 20040113
  2. TIAPRIDE HYDROCHLORIDE (TIAPRIDE HYDROCHLORIDE) [Concomitant]
  3. PRAZOSIN HYDROCHLORIDE (PRAZOSIN HYDROCHLORIDE) [Concomitant]
  4. CHLORMADINONE ACETATE (CHLORMADINONE ACETATE) [Concomitant]

REACTIONS (3)
  - CARDIAC ARREST [None]
  - NEUROLEPTIC MALIGNANT SYNDROME [None]
  - TRACHEAL OBSTRUCTION [None]
